FAERS Safety Report 16483741 (Version 10)
Quarter: 2024Q4

REPORT INFORMATION
  Report Type: Spontaneous
  Country: US (occurrence: US)
  Receive Date: 20190627
  Receipt Date: 20241203
  Transmission Date: 20250114
  Serious: No
  Sender: PFIZER
  Company Number: US-PFIZER INC-2019125632

PATIENT
  Age: 78 Year
  Sex: Female
  Weight: 70 kg

DRUGS (7)
  1. IBRANCE [Suspect]
     Active Substance: PALBOCICLIB
     Indication: Breast cancer metastatic
     Dosage: 125 MG, CYCLIC (3 WEEKS ON, 1 WEEK OFF)
     Route: 048
     Dates: start: 201806, end: 2018
  2. IBRANCE [Suspect]
     Active Substance: PALBOCICLIB
     Dosage: 125 MG, ONCE DAILY
     Route: 048
     Dates: start: 201809
  3. IBRANCE [Suspect]
     Active Substance: PALBOCICLIB
     Dosage: UNK
  4. IBRANCE [Suspect]
     Active Substance: PALBOCICLIB
     Dosage: 75 MG, CYCLIC (TAKE ONCE A DAY FOR 21 DAYS AND THEN STOP FOR 7 DAYS OF EACH 28 DAY CYCLE)
     Route: 048
  5. LETROZOLE [Concomitant]
     Active Substance: LETROZOLE
     Indication: Pelvic neoplasm
     Dosage: 2.5 MG, 1X/DAY
     Dates: start: 201805
  6. XGEVA [Concomitant]
     Active Substance: DENOSUMAB
     Indication: Pelvic neoplasm
     Dosage: UNK, MONTHLY
     Dates: start: 201806
  7. XGEVA [Concomitant]
     Active Substance: DENOSUMAB
     Dosage: UNK, MONTHLY (SHOT ONCE A MONTH)
     Dates: start: 20190621, end: 20190621

REACTIONS (3)
  - Alopecia [Not Recovered/Not Resolved]
  - Condition aggravated [Not Recovered/Not Resolved]
  - Fatigue [Not Recovered/Not Resolved]

NARRATIVE: CASE EVENT DATE: 20190101
